FAERS Safety Report 11879140 (Version 2)
Quarter: 2017Q3

REPORT INFORMATION
  Report Type: Spontaneous
  Country: IT (occurrence: IT)
  Receive Date: 20151230
  Receipt Date: 20170731
  Transmission Date: 20171127
  Serious: Yes (Death)
  Sender: FDA-Public Use
  Company Number: IT-MEDA-2015120079

PATIENT
  Age: 38 Year
  Sex: Male
  Weight: 55 kg

DRUGS (5)
  1. ALCOHOL. [Suspect]
     Active Substance: ALCOHOL
  2. DELORAZEPAM [Suspect]
     Active Substance: DELORAZEPAM
  3. ALPRAZOLAM. [Suspect]
     Active Substance: ALPRAZOLAM
  4. ZOLPIDEM [Suspect]
     Active Substance: ZOLPIDEM\ZOLPIDEM TARTRATE
  5. TRIAZOLAM. [Suspect]
     Active Substance: TRIAZOLAM

REACTIONS (4)
  - Pulmonary oedema [Fatal]
  - Visceral congestion [Fatal]
  - Toxicity to various agents [Fatal]
  - Drug interaction [Fatal]
